FAERS Safety Report 11048295 (Version 1)
Quarter: 2015Q2

REPORT INFORMATION
  Report Type: Spontaneous
  Country: US (occurrence: US)
  Receive Date: 20150420
  Receipt Date: 20150420
  Transmission Date: 20150821
  Serious: Yes (Death)
  Sender: FDA-Public Use
  Company Number: US-PFIZER INC-2015129233

PATIENT
  Age: 51 Year
  Sex: Male

DRUGS (5)
  1. FLUCONAZOLE. [Concomitant]
     Active Substance: FLUCONAZOLE
     Indication: PROPHYLAXIS
  2. VANCOMYCIN [Suspect]
     Active Substance: VANCOMYCIN
     Indication: EVIDENCE BASED TREATMENT
     Dosage: UNK
  3. MEROPENEM. [Suspect]
     Active Substance: MEROPENEM
     Indication: ANTIBIOTIC THERAPY
     Dosage: UNK
  4. CEFAZOLIN [Suspect]
     Active Substance: CEFAZOLIN
     Indication: PROPHYLAXIS
     Dosage: UNK
  5. PIPERACILLIN/TAZOBACTAM [Suspect]
     Active Substance: PIPERACILLIN SODIUM\TAZOBACTAM SODIUM
     Indication: EVIDENCE BASED TREATMENT
     Dosage: UNK

REACTIONS (17)
  - Cardio-respiratory arrest [None]
  - Myocarditis [None]
  - Pneumonia [None]
  - Multi-organ disorder [None]
  - Drug ineffective [Fatal]
  - Asthenia [None]
  - Blood culture positive [None]
  - Acidosis [None]
  - Splenic embolism [None]
  - Peritonitis [None]
  - Hypothermia [None]
  - Hypotension [None]
  - Leukopenia [None]
  - Drug resistance [Fatal]
  - Tachycardia [None]
  - Sepsis [None]
  - Endocarditis [None]
